FAERS Safety Report 16535548 (Version 5)
Quarter: 2019Q4

REPORT INFORMATION
  Report Type: Spontaneous
  Country: US (occurrence: US)
  Receive Date: 20190705
  Receipt Date: 20191226
  Transmission Date: 20200122
  Serious: No
  Sender: FDA-Public Use
  Company Number: US-PFIZER INC-2019273656

PATIENT
  Age: 33 Year
  Sex: Female
  Weight: 65.76 kg

DRUGS (13)
  1. NICOTROL [Suspect]
     Active Substance: NICOTINE
     Dosage: UNK, AS NEEDED (PUFF 1-4 CARTRIDGE PER DAYS NEEDED)
  2. NICOTROL [Suspect]
     Active Substance: NICOTINE
     Dosage: 4 MG, UNK
     Dates: start: 2018
  3. NICOTROL [Suspect]
     Active Substance: NICOTINE
     Dosage: UNK
  4. STEGLATRO [Concomitant]
     Active Substance: ERTUGLIFLOZIN PIDOLATE
     Indication: DIABETES MELLITUS
     Dosage: 5 MG, 1X/DAY (ONCE A DAY IN MORNING)
  5. INVEGA [Concomitant]
     Active Substance: PALIPERIDONE
     Indication: PSYCHOTIC DISORDER
     Dosage: 1 DF, MONTHLY
  6. NICOTROL [Suspect]
     Active Substance: NICOTINE
     Indication: SMOKING CESSATION THERAPY
     Dosage: 3 DF, UNK
  7. JANUVIA [Concomitant]
     Active Substance: SITAGLIPTIN PHOSPHATE
     Indication: DIABETES MELLITUS
     Dosage: 100 MG, 1X/DAY (ONCE A DAY)
  8. NICOTROL [Suspect]
     Active Substance: NICOTINE
     Dosage: 4 DF, UNK
  9. OLANZAPINE. [Concomitant]
     Active Substance: OLANZAPINE
     Indication: PSYCHOTIC DISORDER
     Dosage: 20 MG, 1X/DAY (ONCE A DAY)
  10. NICOTROL [Suspect]
     Active Substance: NICOTINE
     Dosage: 6 DF, UNK
  11. HALOPERIDOL. [Concomitant]
     Active Substance: HALOPERIDOL
     Indication: PSYCHOTIC DISORDER
     Dosage: 5 MG, AS NEEDED
  12. NICOTROL [Suspect]
     Active Substance: NICOTINE
     Dosage: 5 DF, UNK
  13. METFORMIN HCL [Concomitant]
     Active Substance: METFORMIN HYDROCHLORIDE
     Indication: DIABETES MELLITUS
     Dosage: 1000 MG, 2X/DAY (IN THE MORNING AND EVENING)

REACTIONS (1)
  - Drug ineffective [Not Recovered/Not Resolved]

NARRATIVE: CASE EVENT DATE: 20190306
